FAERS Safety Report 7452288-0 (Version None)
Quarter: 2011Q2

REPORT INFORMATION
  Report Type: 
  Country: None (occurrence: None)
  Receive Date: 20110502
  Receipt Date: 20110426
  Transmission Date: 20111010
  Serious: Yes (Hospitalization)
  Sender: FDA-Public Use
  Company Number: US-ABBOTT-11P-163-0722356-00

PATIENT
  Sex: Male

DRUGS (7)
  1. ALLEGRA [Concomitant]
     Indication: SEASONAL ALLERGY
  2. FISH OIL [Concomitant]
     Indication: SUPPLEMENTATION THERAPY
  3. HUMIRA [Suspect]
     Indication: COLITIS
     Route: 058
     Dates: start: 20110419, end: 20110419
  4. PREDNISONE [Concomitant]
     Indication: COLITIS
  5. XANAX [Concomitant]
     Indication: ANXIETY
  6. HUMIRA [Suspect]
  7. VIT E [Concomitant]
     Indication: VITAMIN SUPPLEMENTATION

REACTIONS (5)
  - DIZZINESS [None]
  - OCCULT BLOOD POSITIVE [None]
  - DIARRHOEA [None]
  - PNEUMONIA [None]
  - HAEMOGLOBIN DECREASED [None]
